FAERS Safety Report 10065320 (Version 1)
Quarter: 2014Q2

REPORT INFORMATION
  Report Type: Spontaneous
  Country: US (occurrence: US)
  Receive Date: 20140408
  Receipt Date: 20140408
  Transmission Date: 20141212
  Serious: Yes (Other)
  Sender: FDA-Public Use
  Company Number: US-ASTRAZENECA-2014SE22795

PATIENT
  Age: 69 Year
  Sex: Male
  Weight: 59 kg

DRUGS (2)
  1. SYMBICORT [Suspect]
     Indication: CHRONIC OBSTRUCTIVE PULMONARY DISEASE
     Dosage: 160-4.5, TWO PUFFS BID
     Route: 055
  2. LAPRINOZIL [Concomitant]

REACTIONS (3)
  - Cataract [Unknown]
  - Visual impairment [Unknown]
  - Glaucoma [Unknown]
